FAERS Safety Report 17827372 (Version 3)
Quarter: 2020Q2

REPORT INFORMATION
  Report Type: Spontaneous
  Country: DE (occurrence: DE)
  Receive Date: 20200527
  Receipt Date: 20200616
  Transmission Date: 20200714
  Serious: Yes (Other)
  Sender: FDA-Public Use
  Company Number: DE-BIOGEN-2020BI00878533

PATIENT
  Sex: Male
  Weight: 71 kg

DRUGS (4)
  1. OCRELIZUMAB. [Suspect]
     Active Substance: OCRELIZUMAB
     Route: 042
     Dates: start: 20191126
  2. FAMPYRA [Suspect]
     Active Substance: DALFAMPRIDINE
     Indication: GAIT DISTURBANCE
     Route: 048
  3. OCRELIZUMAB. [Suspect]
     Active Substance: OCRELIZUMAB
     Indication: PRIMARY PROGRESSIVE MULTIPLE SCLEROSIS
     Route: 042
     Dates: start: 20190515, end: 20190527
  4. SATIVEX [Suspect]
     Active Substance: NABIXIMOLS
     Indication: MUSCLE SPASTICITY
     Route: 002
     Dates: start: 20200221

REACTIONS (1)
  - Electrocardiogram QT prolonged [Recovered/Resolved]
